FAERS Safety Report 6857990-7 (Version None)
Quarter: 2010Q3

REPORT INFORMATION
  Report Type: 
  Country: None (occurrence: None)
  Receive Date: 20100715
  Receipt Date: 20100702
  Transmission Date: 20110219
  Serious: Yes (Hospitalization)
  Sender: FDA-Public Use
  Company Number: 015156

PATIENT
  Sex: Male

DRUGS (1)
  1. CIMZIA [Suspect]
     Dosage: SUBCUTANEOUS
     Route: 058
     Dates: start: 20100101, end: 20100326

REACTIONS (5)
  - BLISTER [None]
  - DRUG INEFFECTIVE [None]
  - PULMONARY THROMBOSIS [None]
  - RENAL IMPAIRMENT [None]
  - RESPIRATORY DISTRESS [None]
